FAERS Safety Report 25544259 (Version 2)
Quarter: 2025Q3

REPORT INFORMATION
  Report Type: Spontaneous
  Country: EU (occurrence: EU)
  Receive Date: 20250711
  Receipt Date: 20250806
  Transmission Date: 20251021
  Serious: Yes (Hospitalization, Other)
  Sender: TEVA
  Company Number: EU-TEVA-VS-3348683

PATIENT
  Age: 39 Year
  Sex: Male

DRUGS (4)
  1. VINCRISTINE [Suspect]
     Active Substance: VINCRISTINE
     Indication: Neuroblastoma
     Route: 065
  2. DACARBAZINE [Suspect]
     Active Substance: DACARBAZINE
     Indication: Neuroblastoma
     Route: 065
  3. DOXORUBICIN [Suspect]
     Active Substance: DOXORUBICIN
     Indication: Neuroblastoma
     Route: 065
  4. CYCLOPHOSPHAMIDE [Suspect]
     Active Substance: CYCLOPHOSPHAMIDE
     Indication: Neuroblastoma
     Route: 065

REACTIONS (6)
  - Gastric varices haemorrhage [Unknown]
  - Porto-sinusoidal vascular disorder [Unknown]
  - Paroxysmal nocturnal haemoglobinuria [Unknown]
  - Upper gastrointestinal haemorrhage [Unknown]
  - Hypotension [Unknown]
  - Tachycardia [Unknown]
